FAERS Safety Report 17917594 (Version 2)
Quarter: 2020Q2

REPORT INFORMATION
  Report Type: Spontaneous
  Country: US (occurrence: US)
  Receive Date: 20200619
  Receipt Date: 20200624
  Transmission Date: 20200714
  Serious: No
  Sender: FDA-Public Use
  Company Number: US-ELI_LILLY_AND_COMPANY-US202006006928

PATIENT
  Age: 62 Year
  Sex: Female

DRUGS (1)
  1. EMGALITY [Suspect]
     Active Substance: GALCANEZUMAB-GNLM
     Indication: MIGRAINE
     Dosage: 1 DOSAGE FORM, UNKNOWN
     Route: 058
     Dates: start: 20200612

REACTIONS (6)
  - Product storage error [Unknown]
  - Palpitations [Unknown]
  - Dizziness [Not Recovered/Not Resolved]
  - Diarrhoea [Unknown]
  - Abdominal pain upper [Unknown]
  - Nausea [Not Recovered/Not Resolved]

NARRATIVE: CASE EVENT DATE: 20200612
